FAERS Safety Report 25583334 (Version 1)
Quarter: 2025Q3

REPORT INFORMATION
  Report Type: Report from Study
  Country: CA (occurrence: CA)
  Receive Date: 20250721
  Receipt Date: 20250721
  Transmission Date: 20251020
  Serious: Yes (Hospitalization)
  Sender: BIOGEN
  Company Number: CA-BIOGEN-2025BI01314951

PATIENT
  Age: 19 Year
  Sex: Male

DRUGS (3)
  1. TYSABRI [Suspect]
     Active Substance: NATALIZUMAB
     Indication: Multiple sclerosis
     Route: 050
     Dates: start: 20240322
  2. TYSABRI [Suspect]
     Active Substance: NATALIZUMAB
     Route: 050
     Dates: start: 20240322
  3. TYSABRI [Suspect]
     Active Substance: NATALIZUMAB
     Route: 050
     Dates: start: 20240322

REACTIONS (1)
  - Peritonsillar abscess [Recovered/Resolved]

NARRATIVE: CASE EVENT DATE: 20250619
